FAERS Safety Report 7480631-5 (Version None)
Quarter: 2011Q2

REPORT INFORMATION
  Report Type: 
  Country: None (occurrence: None)
  Receive Date: 20110516
  Receipt Date: 20110509
  Transmission Date: 20111010
  Serious: Yes (Death, Hospitalization, Other)
  Sender: FDA-Public Use
  Company Number: JP-JNJFOC-20090908252

PATIENT
  Sex: Female
  Weight: 52 kg

DRUGS (14)
  1. DOXORUBICIN HCL [Suspect]
     Route: 042
     Dates: start: 20090527, end: 20090527
  2. DOXORUBICIN HCL [Suspect]
     Route: 042
     Dates: start: 20090902, end: 20090902
  3. NAUZELIN [Concomitant]
     Indication: DECREASED APPETITE
     Route: 048
     Dates: start: 20090724
  4. DAI-KENCHU-TO [Concomitant]
     Indication: GASTROINTESTINAL MOTILITY DISORDER
     Dosage: 3 DF
     Route: 048
     Dates: start: 20090724
  5. DOXORUBICIN HCL [Suspect]
     Indication: OVARIAN CANCER RECURRENT
     Route: 042
     Dates: start: 20090428, end: 20090428
  6. DOXORUBICIN HCL [Suspect]
     Route: 042
     Dates: start: 20090626, end: 20090626
  7. TAKEPRON [Concomitant]
     Indication: REFLUX OESOPHAGITIS
     Route: 048
     Dates: start: 20080416
  8. PYDOXAL [Concomitant]
     Indication: PROPHYLAXIS
     Route: 048
     Dates: start: 20090426
  9. OXALIPLATIN [Suspect]
     Indication: OVARIAN CANCER RECURRENT
     Route: 041
     Dates: start: 20081001
  10. GASMOTIN [Concomitant]
     Indication: GASTROINTESTINAL MOTILITY DISORDER
     Route: 048
     Dates: start: 20090724
  11. GEMCITABINE [Suspect]
     Indication: OVARIAN CANCER RECURRENT
     Route: 041
     Dates: start: 20081029
  12. DOXORUBICIN HCL [Suspect]
     Route: 042
     Dates: start: 20090805, end: 20090805
  13. CELECOXIB [Concomitant]
     Indication: CANCER PAIN
     Route: 048
     Dates: start: 20080416
  14. DOXORUBICIN HCL [Suspect]
     Route: 042
     Dates: start: 20091013, end: 20091013

REACTIONS (6)
  - PLATELET COUNT DECREASED [None]
  - WHITE BLOOD CELL COUNT DECREASED [None]
  - ANAEMIA [None]
  - OVARIAN CANCER [None]
  - ERYTHROPENIA [None]
  - INTESTINAL OBSTRUCTION [None]
